FAERS Safety Report 9134707 (Version 1)
Quarter: 2013Q1

REPORT INFORMATION
  Report Type: Spontaneous
  Country: US (occurrence: US)
  Receive Date: 20130304
  Receipt Date: 20130304
  Transmission Date: 20140127
  Serious: No
  Sender: FDA-Public Use
  Company Number: US-ENDO PHARMACEUTICALS INC.-VALS20120034

PATIENT
  Age: 72 Year
  Sex: Male
  Weight: 60.38 kg

DRUGS (6)
  1. VALSTAR [Suspect]
     Indication: PRODUCT USED FOR UNKNOWN INDICATION
     Dosage: UNKNOWN
     Route: 043
     Dates: start: 20120515, end: 20120515
  2. VALSTAR [Suspect]
     Dosage: UNKNOWN
     Route: 043
     Dates: start: 20120607, end: 20120607
  3. VALSTAR [Suspect]
     Dosage: UNKNOWN
     Route: 043
     Dates: start: 20120614, end: 20120614
  4. VALSTAR [Suspect]
     Dosage: UNKNOWN
     Route: 043
     Dates: start: 20120621, end: 20120621
  5. VALSTAR [Suspect]
     Dosage: UNKNOWN
     Route: 043
     Dates: start: 20120629, end: 20120629
  6. VALSTAR [Suspect]
     Dosage: UNKNOWN
     Route: 043
     Dates: start: 20120710, end: 20120710

REACTIONS (5)
  - Feeling hot [Recovered/Resolved]
  - Bladder spasm [Recovered/Resolved]
  - Burning sensation [Recovered/Resolved]
  - Urge incontinence [Recovered/Resolved]
  - Bladder instillation procedure [Recovered/Resolved]
